FAERS Safety Report 11190334 (Version 1)
Quarter: 2015Q2

REPORT INFORMATION
  Report Type: Spontaneous
  Country: US (occurrence: None)
  Receive Date: 20150612
  Receipt Date: 20150612
  Transmission Date: 20150821
  Serious: No
  Sender: FDA-Public Use
  Company Number: None

PATIENT
  Age: 42 Year
  Sex: Male
  Weight: 95.26 kg

DRUGS (4)
  1. OTEZLA [Suspect]
     Active Substance: APREMILAST
     Indication: PSORIATIC ARTHROPATHY
     Dosage: 1 PILL 30MG TWICE DAILY TAKEN BY MOUTH
     Route: 048
     Dates: start: 20150501, end: 20150529
  2. METHOTREXATE [Concomitant]
     Active Substance: METHOTREXATE
  3. IBUPROFEN. [Concomitant]
     Active Substance: IBUPROFEN
  4. NAPROSYN SODIUM [Concomitant]

REACTIONS (4)
  - Upper respiratory tract congestion [None]
  - Cough [None]
  - Headache [None]
  - Nasopharyngitis [None]
